FAERS Safety Report 8962938 (Version 2)
Quarter: 2013Q1

REPORT INFORMATION
  Report Type: Spontaneous
  Country: None (occurrence: None)
  Receive Date: 20121205
  Receipt Date: 20130124
  Transmission Date: 20140127
  Serious: Yes (Other)
  Sender: FDA-Public Use
  Company Number: 2012IE0376

PATIENT
  Age: 6 Year
  Sex: Male

DRUGS (3)
  1. ORFADIN [Suspect]
     Indication: TYROSINAEMIA
  2. BECLOMETHASONE (BECLOMETHASONE) [Concomitant]
  3. SALBUTAMOL (SALBUTAMOL) [Concomitant]

REACTIONS (4)
  - Attention deficit/hyperactivity disorder [None]
  - Enuresis [None]
  - Amino acid level increased [None]
  - Dyspraxia [None]
